FAERS Safety Report 8432990-4 (Version None)
Quarter: 2012Q2

REPORT INFORMATION
  Report Type: 
  Country: None (occurrence: None)
  Receive Date: 20120323
  Receipt Date: 20110714
  Transmission Date: 20120825
  Serious: Yes (Other)
  Sender: FDA-Public Use
  Company Number: 163-21880-11071810

PATIENT
  Age: 63 Year
  Sex: Male

DRUGS (4)
  1. ALENDRONATE SODIUM [Concomitant]
  2. REVLIMID [Suspect]
     Indication: PROSTATE CANCER
     Dosage: 15 MG, 1 IN 1 D, PO
     Route: 048
     Dates: start: 20110224, end: 20110227
  3. AMITRIPTYLINE HCL [Concomitant]
  4. DOCUSATE (DOCUSATE) [Concomitant]

REACTIONS (1)
  - ASTHENIA [None]
